FAERS Safety Report 13595001 (Version 1)
Quarter: 2017Q2

REPORT INFORMATION
  Report Type: Report from Study
  Country: None (occurrence: ZA)
  Receive Date: 20170531
  Receipt Date: 20170531
  Transmission Date: 20170830
  Serious: Yes (Hospitalization)
  Sender: FDA-Public Use
  Company Number: ZA-ABBVIE-17K-143-1990787-00

PATIENT
  Age: 17 Year
  Sex: Female
  Weight: 55.9 kg

DRUGS (1)
  1. HUMIRA [Suspect]
     Active Substance: ADALIMUMAB
     Indication: PSORIATIC ARTHROPATHY
     Route: 058
     Dates: start: 201705

REACTIONS (3)
  - Arthralgia [Unknown]
  - Painful respiration [Recovering/Resolving]
  - Influenza like illness [Unknown]

NARRATIVE: CASE EVENT DATE: 201705
